FAERS Safety Report 7654852-2 (Version None)
Quarter: 2011Q3

REPORT INFORMATION
  Report Type: 
  Country: None (occurrence: None)
  Receive Date: 20110803
  Receipt Date: 20110803
  Transmission Date: 20111222
  Serious: No
  Sender: FDA-Public Use
  Company Number: None

PATIENT
  Sex: Female

DRUGS (1)
  1. COPAXONE [Suspect]
     Dosage: INJECT 20MG (1 SYRINGE) SUBCUTANEOUSLY EVERY DAY AS DIRECTED BY YOUR PHYS.*KEEP REFRIGERATED*
     Route: 058
     Dates: start: 20100618

REACTIONS (4)
  - CARDIOVASCULAR DISORDER [None]
  - PALPITATIONS [None]
  - ANXIETY [None]
  - STRESS [None]
